FAERS Safety Report 4494650-4 (Version None)
Quarter: 2004Q4

REPORT INFORMATION
  Report Type: 
  Country: None (occurrence: None)
  Receive Date: 20041103
  Receipt Date: 20041025
  Transmission Date: 20050328
  Serious: Yes (Other)
  Sender: FDA-Public Use
  Company Number: 2004-10-1592

PATIENT
  Age: 46 Year
  Sex: Female

DRUGS (1)
  1. BETAMATHASONE DIPROPIONATE [Suspect]
     Indication: PAIN
     Dosage: INTRAMUSCULAR
     Route: 030
     Dates: start: 20041021, end: 20041021

REACTIONS (2)
  - ECCHYMOSIS [None]
  - LARYNGOSPASM [None]
